FAERS Safety Report 4343562-5 (Version None)
Quarter: 2004Q2

REPORT INFORMATION
  Report Type: 
  Country: None (occurrence: None)
  Receive Date: 20040419
  Receipt Date: 20040405
  Transmission Date: 20050107
  Serious: No
  Sender: FDA-Public Use
  Company Number: 2004GB00802

PATIENT
  Age: 60 Year
  Sex: Female

DRUGS (1)
  1. BUPIVACAINE [Suspect]
     Indication: LOCAL ANAESTHESIA
     Dosage: 3.5 CC OF 0/5 % SOLN
     Dates: start: 20040112

REACTIONS (4)
  - ANXIETY [None]
  - CORONARY ARTERY THROMBOSIS [None]
  - HYPERTENSION [None]
  - PAIN IN JAW [None]
